FAERS Safety Report 6905115-1 (Version None)
Quarter: 2010Q3

REPORT INFORMATION
  Report Type: 
  Country: None (occurrence: None)
  Receive Date: 20100804
  Receipt Date: 20090919
  Transmission Date: 20110219
  Serious: No
  Sender: FDA-Public Use
  Company Number: US-PFIZER INC-2009214539

PATIENT
  Sex: Female
  Weight: 86 kg

DRUGS (6)
  1. LYRICA [Suspect]
     Indication: NEUROPATHY PERIPHERAL
     Dosage: UNK
     Route: 048
     Dates: start: 20090401
  2. GLICLAZIDE [Concomitant]
  3. MEPROBAMATE [Concomitant]
  4. CLONAZEPAM [Concomitant]
  5. NEUTREXIN [Concomitant]
  6. PREDNISONE [Concomitant]

REACTIONS (5)
  - DIZZINESS [None]
  - MEMORY IMPAIRMENT [None]
  - MYALGIA [None]
  - OEDEMA PERIPHERAL [None]
  - WEIGHT INCREASED [None]
